FAERS Safety Report 5978866-3 (Version None)
Quarter: 2008Q4

REPORT INFORMATION
  Report Type: 
  Country: None (occurrence: None)
  Receive Date: 20081126
  Receipt Date: 20080208
  Transmission Date: 20090506
  Serious: Yes (Other)
  Sender: FDA-Public Use
  Company Number: 2008BH001256

PATIENT
  Sex: Male

DRUGS (7)
  1. DIANEAL [Suspect]
     Indication: PERITONEAL DIALYSIS
     Dosage: IP
     Route: 033
  2. NORVASC [Concomitant]
  3. XANAX [Concomitant]
  4. CLONIDINE [Concomitant]
  5. CARDURA [Concomitant]
  6. PREDNISONE TAB [Concomitant]
  7. FOSRENOL [Concomitant]

REACTIONS (1)
  - PERITONITIS [None]
